FAERS Safety Report 20187949 (Version 1)
Quarter: 2021Q4

REPORT INFORMATION
  Report Type: Spontaneous
  Country: US (occurrence: US)
  Receive Date: 20211215
  Receipt Date: 20211215
  Transmission Date: 20220304
  Serious: Yes (Death)
  Sender: FDA-Public Use
  Company Number: US-PURDUE PHARMA-USA-2020-0188417

PATIENT
  Age: 92 Year
  Sex: Female
  Weight: 40.816 kg

DRUGS (2)
  1. HYDROCODONE BITARTRATE [Suspect]
     Active Substance: HYDROCODONE BITARTRATE
     Indication: Back pain
     Dosage: 7.5 TO 325 MG
     Route: 048
     Dates: start: 199812, end: 20140104
  2. FENTANYL [Suspect]
     Active Substance: FENTANYL
     Indication: Back pain
     Dosage: 12 MCG, UNK
     Route: 062
     Dates: start: 199812, end: 20140104

REACTIONS (2)
  - Overdose [Fatal]
  - Product prescribing issue [Unknown]

NARRATIVE: CASE EVENT DATE: 19981201
